FAERS Safety Report 23286969 (Version 1)
Quarter: 2023Q4

REPORT INFORMATION
  Report Type: Spontaneous
  Country: FR (occurrence: FR)
  Receive Date: 20231212
  Receipt Date: 20231212
  Transmission Date: 20240110
  Serious: Yes (Other)
  Sender: FDA-Public Use
  Company Number: None

PATIENT
  Age: 21 Year
  Sex: Female
  Weight: 68 kg

DRUGS (6)
  1. DOXORUBICIN [Suspect]
     Active Substance: DOXORUBICIN
     Indication: Hodgkin^s disease
     Dosage: 45 MG, CYCLICAL
     Route: 042
     Dates: start: 20221220
  2. VINBLASTINE SULFATE [Suspect]
     Active Substance: VINBLASTINE SULFATE
     Indication: Hodgkin^s disease
     Dosage: 118 MG, 1 TOTAL
     Route: 042
     Dates: start: 20221220, end: 20230616
  3. ONDANSETRON [Suspect]
     Active Substance: ONDANSETRON
     Indication: Prophylaxis of nausea and vomiting
     Dosage: 1 DF, 1 CYCLICAL
     Route: 042
     Dates: start: 20221220
  4. POLARAMINE [Suspect]
     Active Substance: DEXCHLORPHENIRAMINE MALEATE
     Indication: Chemotherapy side effect prophylaxis
     Dosage: 1 DF, CYCLICAL, STRENGTH: 5 MG/1 ML, SOLUTION INJECTABLE
     Route: 042
     Dates: start: 20221220
  5. METHYLPREDNISOLONE [Suspect]
     Active Substance: METHYLPREDNISOLONE
     Indication: Prophylaxis of nausea and vomiting
     Dosage: 2 DF, 1 CYLICAL, VIATRIS, STRENGTH: 20 MG, (IM/IV)
     Route: 042
     Dates: start: 20230106
  6. DACARBAZINE [Suspect]
     Active Substance: DACARBAZINE
     Indication: Hodgkin^s disease
     Dosage: 700 MG, 1 CYCLICAL
     Route: 042
     Dates: start: 20221220

REACTIONS (2)
  - Motor dysfunction [Recovered/Resolved]
  - Asthenia [Recovered/Resolved]

NARRATIVE: CASE EVENT DATE: 20230616
